FAERS Safety Report 25262006 (Version 3)
Quarter: 2025Q3

REPORT INFORMATION
  Report Type: Spontaneous
  Country: SG (occurrence: SG)
  Receive Date: 20250502
  Receipt Date: 20250708
  Transmission Date: 20251021
  Serious: Yes (Life-Threatening, Hospitalization, Other)
  Sender: TAKEDA
  Company Number: SG-LUNDBECK-DKLU4013830

PATIENT
  Age: 19 Year
  Sex: Female

DRUGS (5)
  1. VORTIOXETINE [Suspect]
     Active Substance: VORTIOXETINE
     Indication: Product used for unknown indication
     Dates: start: 20240901, end: 20241008
  2. VORTIOXETINE [Suspect]
     Active Substance: VORTIOXETINE
     Dosage: 10 MILLIGRAM, QD
     Dates: start: 20241009, end: 20241114
  3. VORTIOXETINE [Suspect]
     Active Substance: VORTIOXETINE
  4. VORTIOXETINE [Suspect]
     Active Substance: VORTIOXETINE
     Dates: start: 20241115, end: 20250401
  5. HYDROXYZINE [Concomitant]
     Active Substance: HYDROXYZINE HYDROCHLORIDE
     Indication: Product used for unknown indication

REACTIONS (4)
  - Suicide attempt [Recovered/Resolved]
  - Blunted affect [Recovered/Resolved]
  - Wrong technique in product usage process [Unknown]
  - Treatment noncompliance [Unknown]

NARRATIVE: CASE EVENT DATE: 20241101
